FAERS Safety Report 17035226 (Version 1)
Quarter: 2019Q4

REPORT INFORMATION
  Report Type: Report from Study
  Country: CO (occurrence: CO)
  Receive Date: 20191115
  Receipt Date: 20191115
  Transmission Date: 20200122
  Serious: Yes (Other)
  Sender: FDA-Public Use
  Company Number: CO-ROCHE-2421971

PATIENT
  Sex: Female

DRUGS (4)
  1. CICLOSPORIN [Concomitant]
     Active Substance: CYCLOSPORINE
  2. TACROLIMUS. [Concomitant]
     Active Substance: TACROLIMUS
  3. CELLCEPT [Suspect]
     Active Substance: MYCOPHENOLATE MOFETIL\MYCOPHENOLATE MOFETIL HYDROCHLORIDE
     Indication: PRODUCT USED FOR UNKNOWN INDICATION
     Route: 065
  4. PREDNISOLONE. [Concomitant]
     Active Substance: PREDNISOLONE

REACTIONS (5)
  - Transplant rejection [Unknown]
  - Swelling face [Unknown]
  - Diarrhoea [Unknown]
  - Chills [Unknown]
  - Blood creatinine decreased [Unknown]
